FAERS Safety Report 17821534 (Version 1)
Quarter: 2020Q2

REPORT INFORMATION
  Report Type: Spontaneous
  Country: JP (occurrence: JP)
  Receive Date: 20200525
  Receipt Date: 20200525
  Transmission Date: 20200714
  Serious: Yes (Hospitalization)
  Sender: FDA-Public Use
  Company Number: JP-SUN PHARMACEUTICAL INDUSTRIES LTD-2020R1-247408

PATIENT
  Age: 39 Year
  Sex: Male

DRUGS (2)
  1. XYLITOL [Suspect]
     Active Substance: XYLITOL
     Indication: FLUID REPLACEMENT
     Dosage: UNK (MAXIMUM OF 10,000 ML/DAY OF 5% WAS ADMINISTERED FOR 8 DAYS)
     Route: 065
  2. LITHIUM. [Suspect]
     Active Substance: LITHIUM
     Indication: PSYCHIATRIC SYMPTOM
     Dosage: 1200 MILLIGRAM, DAILY
     Route: 065

REACTIONS (2)
  - Nephrogenic diabetes insipidus [Unknown]
  - Oxalosis [Unknown]
